FAERS Safety Report 4810051-0 (Version None)
Quarter: 2005Q4

REPORT INFORMATION
  Report Type: 
  Country: None (occurrence: None)
  Receive Date: 20051024
  Receipt Date: 20051012
  Transmission Date: 20060501
  Serious: Yes (Death)
  Sender: FDA-Public Use
  Company Number: USA-2005-0021549

PATIENT
  Age: 2 Year
  Sex: Male

DRUGS (1)
  1. OXYCODONE HCL [Suspect]
     Indication: ACCIDENTAL EXPOSURE
     Dosage: SEE TEXT, ORAL
     Route: 048

REACTIONS (8)
  - ACCIDENTAL EXPOSURE [None]
  - CARDIAC ARREST [None]
  - CYANOSIS [None]
  - FOREIGN BODY ASPIRATION [None]
  - PULSE ABSENT [None]
  - SKIN WARM [None]
  - UNRESPONSIVE TO VERBAL STIMULI [None]
  - VENTRICULAR FIBRILLATION [None]
